FAERS Safety Report 20556404 (Version 6)
Quarter: 2022Q3

REPORT INFORMATION
  Report Type: Report from Study
  Country: MX (occurrence: MX)
  Receive Date: 20220305
  Receipt Date: 20220917
  Transmission Date: 20221026
  Serious: Yes (Disabling, Other)
  Sender: FDA-Public Use
  Company Number: MX-NOVARTISPH-NVSC2022MX052414

PATIENT
  Sex: Male

DRUGS (1)
  1. TASIGNA [Suspect]
     Active Substance: NILOTINIB
     Indication: Chronic myeloid leukaemia
     Dosage: UNK
     Route: 048

REACTIONS (13)
  - Myelofibrosis [Unknown]
  - Fatigue [Unknown]
  - General physical health deterioration [Unknown]
  - Spleen disorder [Unknown]
  - Umbilical hernia [Unknown]
  - Agitation [Unknown]
  - Feeling abnormal [Unknown]
  - Splenomegaly [Unknown]
  - Blood iron decreased [Unknown]
  - Limb injury [Unknown]
  - Pain [Unknown]
  - Abdominal pain upper [Unknown]
  - Drug ineffective [Not Recovered/Not Resolved]
